FAERS Safety Report 25557124 (Version 4)
Quarter: 2025Q3

REPORT INFORMATION
  Report Type: Report from Study
  Country: US (occurrence: US)
  Receive Date: 20250715
  Receipt Date: 20250908
  Transmission Date: 20251020
  Serious: Yes (Death, Other)
  Sender: TAIHO ONCOLOGY INC
  Company Number: US-TAIHOP-2025-007396

PATIENT
  Age: 73 Year
  Sex: Male

DRUGS (1)
  1. INQOVI [Suspect]
     Active Substance: CEDAZURIDINE\DECITABINE
     Indication: Myelodysplastic syndrome
     Dosage: ON DAYS 1 THROUGH 5 OF EVERY 28 DAY CYCLE
     Route: 048
     Dates: start: 20250619

REACTIONS (4)
  - Death [Fatal]
  - Transfusion [Unknown]
  - Diarrhoea [Unknown]
  - Platelet count decreased [Unknown]
